FAERS Safety Report 9235041 (Version 1)
Quarter: 2013Q2

REPORT INFORMATION
  Report Type: Spontaneous
  Country: US (occurrence: US)
  Receive Date: 20130416
  Receipt Date: 20130416
  Transmission Date: 20140414
  Serious: Yes (Hospitalization)
  Sender: FDA-Public Use
  Company Number: US-ALLERGAN-1304990US

PATIENT
  Age: 67 Year
  Sex: Female
  Weight: 77 kg

DRUGS (11)
  1. COMBIGAN[R] [Suspect]
     Indication: GLAUCOMA
     Dosage: 2 GTT, QD
     Route: 047
     Dates: start: 2011
  2. ATENOLOL [Suspect]
     Indication: PRODUCT USED FOR UNKNOWN INDICATION
     Dosage: 25 MG, QD
     Route: 048
     Dates: start: 2008
  3. ETANERCEPT [Concomitant]
     Indication: PRODUCT USED FOR UNKNOWN INDICATION
     Dosage: 50 MG, Q WEEK
     Route: 058
     Dates: start: 20120428
  4. LUMIGAN? 0.01% [Concomitant]
     Indication: GLAUCOMA
     Route: 047
  5. AMBIEN [Concomitant]
     Indication: INSOMNIA
     Route: 048
  6. LEVOTHYROXINE [Concomitant]
     Indication: HYPOTHYROIDISM
     Route: 048
  7. PREDNISONE [Concomitant]
     Indication: RHEUMATOID ARTHRITIS
     Dosage: 5 MG, QD
     Route: 048
     Dates: start: 1987
  8. TRAMADOL [Concomitant]
     Indication: RHEUMATOID ARTHRITIS
     Dosage: 2 DF, PRN
     Route: 048
     Dates: start: 20120308
  9. HYDROCODONE BITARTRATE [Concomitant]
     Indication: RHEUMATOID ARTHRITIS
     Dosage: 5 MG, PRN
     Route: 048
     Dates: start: 20120308
  10. ACETAMINOPHEN [Concomitant]
     Indication: RHEUMATOID ARTHRITIS
     Dosage: 325 MG, PRN
     Route: 048
     Dates: start: 20110308
  11. FISH OIL [Concomitant]
     Indication: PRODUCT USED FOR UNKNOWN INDICATION
     Dosage: 2 DF, QD
     Route: 048
     Dates: start: 201201

REACTIONS (4)
  - Mitral valve incompetence [Unknown]
  - Left atrial dilatation [Unknown]
  - Bradycardia [Recovered/Resolved]
  - Dizziness [Unknown]
